FAERS Safety Report 4367586-7 (Version None)
Quarter: 2004Q2

REPORT INFORMATION
  Report Type: 
  Country: None (occurrence: None)
  Receive Date: 20040526
  Receipt Date: 20040406
  Transmission Date: 20050107
  Serious: No
  Sender: FDA-Public Use
  Company Number: 2004US002095

PATIENT
  Age: 43 Year
  Sex: Female
  Weight: 78.5 kg

DRUGS (11)
  1. ALOXI [Suspect]
     Indication: PROPHYLAXIS OF NAUSEA AND VOMITING
     Dosage: 0.25 MG, SINGLE, INTRAVENOUS
     Route: 042
     Dates: start: 20040325, end: 20040325
  2. HEXADROL (DEXAMETHASONE) [Concomitant]
  3. SODIUM CHLORIDE [Concomitant]
  4. ADRIAMYCIN PFS [Concomitant]
  5. CYTOXAN [Concomitant]
  6. ALLEGRA [Concomitant]
  7. LORTAB [Concomitant]
  8. EZOL (BUTALBITAL, CAFFEINE, PARACETAMOL) [Concomitant]
  9. PHENERGAN WITH CODEINE (SULFOGAIACOL, SODIUM CITRATE, PROMETHAZINE HYD [Concomitant]
  10. HORMONAL CONTRACEPTIVES FOR SYSTEMIC USE [Concomitant]
  11. MEDENT LD (GUAIFENESIN, PSEUDOEPHEDRINE) [Concomitant]

REACTIONS (3)
  - DRUG INEFFECTIVE [None]
  - MYALGIA [None]
  - NAUSEA [None]
